FAERS Safety Report 18406978 (Version 2)
Quarter: 2020Q4

REPORT INFORMATION
  Report Type: Spontaneous
  Country: US (occurrence: US)
  Receive Date: 20201020
  Receipt Date: 20201021
  Transmission Date: 20210114
  Serious: No
  Sender: FDA-Public Use
  Company Number: US-BAYER-2020-225135

PATIENT
  Age: 63 Year
  Sex: Female

DRUGS (1)
  1. CLIMARA [Suspect]
     Active Substance: ESTRADIOL
     Dosage: UNK UNK, OW
     Route: 062

REACTIONS (3)
  - Product label confusion [None]
  - Wrong technique in device usage process [None]
  - Product adhesion issue [None]
